FAERS Safety Report 5333657-1 (Version None)
Quarter: 2007Q2

REPORT INFORMATION
  Report Type: 
  Country: None (occurrence: None)
  Receive Date: 20070524
  Receipt Date: 20070522
  Transmission Date: 20071010
  Serious: Yes (Other)
  Sender: FDA-Public Use
  Company Number: A0645794A

PATIENT
  Age: 81 Year
  Sex: Female

DRUGS (3)
  1. ADVAIR DISKUS 100/50 [Suspect]
     Indication: ASTHMA
     Dosage: 1PUFF TWICE PER DAY
     Route: 055
     Dates: start: 20010101, end: 20070401
  2. NORVASC [Concomitant]
  3. SINGULAIR [Concomitant]

REACTIONS (3)
  - CHOKING [None]
  - COUGH [None]
  - PHARMACEUTICAL PRODUCT COMPLAINT [None]
